FAERS Safety Report 10729285 (Version 1)
Quarter: 2015Q1

REPORT INFORMATION
  Report Type: Spontaneous
  Country: US (occurrence: None)
  Receive Date: 20150120
  Receipt Date: 20150120
  Transmission Date: 20150721
  Serious: Yes (Hospitalization, Disabling)
  Sender: FDA-Public Use
  Company Number: None

PATIENT
  Age: 65 Year
  Sex: Female

DRUGS (2)
  1. BONIVA [Suspect]
     Active Substance: IBANDRONATE SODIUM
     Indication: OSTEOPOROSIS
     Dosage: 1 PILL 1 X MONTH TAKEN BY MOUTH
     Route: 048
  2. BONIVA [Suspect]
     Active Substance: IBANDRONATE SODIUM
     Indication: PROPHYLAXIS
     Dosage: 1 PILL 1 X MONTH TAKEN BY MOUTH
     Route: 048

REACTIONS (1)
  - Femur fracture [None]

NARRATIVE: CASE EVENT DATE: 20141120
